FAERS Safety Report 23956967 (Version 1)
Quarter: 2024Q2

REPORT INFORMATION
  Report Type: Spontaneous
  Country: AR (occurrence: AR)
  Receive Date: 20240610
  Receipt Date: 20240610
  Transmission Date: 20240715
  Serious: Yes (Other)
  Sender: FDA-Public Use
  Company Number: AR-PFIZER INC-202400188404

PATIENT
  Age: 6 Year
  Sex: Male

DRUGS (1)
  1. GENOTROPIN [Suspect]
     Active Substance: SOMATROPIN
     Indication: Chronic kidney disease
     Dosage: 1.4 MG, 7X PER WEEK
     Dates: start: 20200124, end: 20240315

REACTIONS (2)
  - Renal transplant [Unknown]
  - Off label use [Unknown]

NARRATIVE: CASE EVENT DATE: 20200124
